FAERS Safety Report 8964133 (Version 3)
Quarter: 2013Q1

REPORT INFORMATION
  Report Type: Report from Study
  Country: US (occurrence: US)
  Receive Date: 20121213
  Receipt Date: 20130131
  Transmission Date: 20140127
  Serious: Yes (Other)
  Sender: FDA-Public Use
  Company Number: US-GILEAD-2012-0065966

PATIENT
  Age: 26 Year
  Sex: Female

DRUGS (1)
  1. EMTRICITABINE/RILPIVIRINE/TENOFOVIR [Suspect]
     Indication: HIV INFECTION
     Dosage: 1 DF, QD
     Route: 048

REACTIONS (3)
  - Ectopic pregnancy [Unknown]
  - Pelvic mass [Unknown]
  - Exposure during pregnancy [None]
